FAERS Safety Report 14285729 (Version 1)
Quarter: 2017Q4

REPORT INFORMATION
  Report Type: Report from Study
  Country: IL (occurrence: IL)
  Receive Date: 20171214
  Receipt Date: 20171214
  Transmission Date: 20180321
  Serious: Yes (Hospitalization)
  Sender: FDA-Public Use
  Company Number: IL-ACTELION-A-CH2017-163810

PATIENT
  Age: 38 Year
  Sex: Female

DRUGS (10)
  1. ASPIRIN. [Concomitant]
     Active Substance: ASPIRIN
  2. OMEPRADEX [Concomitant]
     Active Substance: OMEPRAZOLE
  3. PRIMOLUT-NOR [Concomitant]
     Dosage: UNK
     Dates: start: 20171121
  4. VITAMIN B12 [Concomitant]
     Active Substance: CYANOCOBALAMIN
  5. TRITACE [Concomitant]
     Active Substance: RAMIPRIL
     Route: 042
  6. FOLIC ACID. [Concomitant]
     Active Substance: FOLIC ACID
  7. OPSUMIT [Suspect]
     Active Substance: MACITENTAN
     Indication: PULMONARY ARTERIAL HYPERTENSION
     Dosage: 10 MG, QD
     Route: 048
     Dates: start: 201705
  8. REVATIO [Concomitant]
     Active Substance: SILDENAFIL CITRATE
  9. UPTRAVI [Suspect]
     Active Substance: SELEXIPAG
     Indication: PULMONARY ARTERIAL HYPERTENSION
     Dosage: 200 MCG, BID
     Route: 048
     Dates: start: 20171114
  10. CARDILOC [Concomitant]
     Active Substance: BISOPROLOL FUMARATE

REACTIONS (4)
  - Transfusion [Unknown]
  - Haemoglobin decreased [Recovering/Resolving]
  - Intra-uterine contraceptive device removal [Unknown]
  - Vaginal haemorrhage [Recovering/Resolving]

NARRATIVE: CASE EVENT DATE: 201711
